FAERS Safety Report 18041836 (Version 1)
Quarter: 2020Q3

REPORT INFORMATION
  Report Type: Spontaneous
  Country: GB (occurrence: GB)
  Receive Date: 20200720
  Receipt Date: 20200720
  Transmission Date: 20201103
  Serious: Yes (Hospitalization)
  Sender: FDA-Public Use
  Company Number: GB-TEVA-2020-GB-1801397

PATIENT
  Age: 46 Year

DRUGS (7)
  1. CANDESARTAN. [Concomitant]
     Active Substance: CANDESARTAN
     Dosage: 6 MG
     Route: 048
  2. GABAPENTIN. [Concomitant]
     Active Substance: GABAPENTIN
     Dosage: 1800 MG
     Route: 048
     Dates: end: 20200622
  3. CLOPIDOGREL [Concomitant]
     Active Substance: CLOPIDOGREL BISULFATE
     Dosage: 75 MG
     Route: 048
     Dates: end: 20200621
  4. QVAR [Concomitant]
     Active Substance: BECLOMETHASONE DIPROPIONATE
     Dosage: PUFFS 100MICROGRAMS/DOSE, UNIT DOSE: 4 DOSAGE FORMS
     Route: 055
  5. TOPIRAMATE. [Suspect]
     Active Substance: TOPIRAMATE
     Indication: MIGRAINE PROPHYLAXIS
     Dosage: 25 MG
     Route: 048
     Dates: start: 20200622, end: 20200626
  6. SALMETEROL [Concomitant]
     Active Substance: SALMETEROL
     Dosage: 25MICROGRAMS/DOSE, UNIT DOSE: 4 DOSAGE FORMS
     Route: 055
  7. APIXABAN [Concomitant]
     Active Substance: APIXABAN
     Indication: DEEP VEIN THROMBOSIS
     Dosage: 10 MG
     Route: 048
     Dates: start: 20200622

REACTIONS (1)
  - Aphasia [Recovered/Resolved]

NARRATIVE: CASE EVENT DATE: 20200626
